FAERS Safety Report 5170361-7 (Version None)
Quarter: 2006Q4

REPORT INFORMATION
  Report Type: 
  Country: None (occurrence: None)
  Receive Date: 20061204
  Receipt Date: 20061122
  Transmission Date: 20070319
  Serious: Yes (Hospitalization)
  Sender: FDA-Public Use
  Company Number: 2006134132

PATIENT
  Age: 74 Year
  Sex: Female

DRUGS (14)
  1. PREDNISOLONE [Suspect]
     Dosage: 15 MG (15 MG, 1 IN 1 D), ORAL
     Route: 048
  2. ENBREL [Suspect]
     Indication: POLYARTHRITIS
     Dosage: (25 MG), SUBCUTANEOUS
     Route: 058
     Dates: end: 20060506
  3. SELOKEN ZOC (METOPROLOL SUCCINATE) [Concomitant]
  4. DETRUSITOL (TOLTERODINE L-TR\ARTRATE) [Concomitant]
  5. KALCIPOS-D (CALCIUM CARBONATE, COLESCALCIFEROL) [Concomitant]
  6. OMERPRAZOLE (OMEPRAZOLE) [Concomitant]
  7. SIMVASTATIN [Concomitant]
  8. ACETAMINOPHEN [Concomitant]
  9. IBUETIN (IBUPROFEN) [Concomitant]
  10. EMGESARN (MAGNESIUM HYDROXIDE) [Concomitant]
  11. ASPIRIN [Concomitant]
  12. ESTRIOL (ESTRIOL) [Concomitant]
  13. NOVONORM (REPAGLINIDE) [Concomitant]
  14. LINATIL (ENALAPRIL [Concomitant]

REACTIONS (8)
  - MALAISE [None]
  - NAUSEA [None]
  - PAIN [None]
  - PAIN IN EXTREMITY [None]
  - PYREXIA [None]
  - STAPHYLOCOCCAL SEPSIS [None]
  - VARICOSE VEIN [None]
  - VOMITING [None]
